FAERS Safety Report 10168324 (Version 3)
Quarter: 2014Q2

REPORT INFORMATION
  Report Type: Report from Study
  Country: CA (occurrence: CA)
  Receive Date: 20140512
  Receipt Date: 20140527
  Transmission Date: 20141212
  Serious: Yes (Hospitalization)
  Sender: FDA-Public Use
  Company Number: PHHY2014CA056335

PATIENT
  Sex: Female

DRUGS (4)
  1. GILENYA [Suspect]
     Indication: RELAPSING-REMITTING MULTIPLE SCLEROSIS
     Dosage: 0.5 MG, QD
     Route: 048
     Dates: start: 20130129, end: 20140401
  2. GILENYA [Suspect]
     Dosage: 0.5 MG, QD
     Route: 048
     Dates: start: 20140520
  3. BACLOFEN [Concomitant]
     Dosage: 30 MG, UNK
  4. ALERTEC [Concomitant]
     Dosage: 100 MG, BID

REACTIONS (3)
  - Colitis ischaemic [Recovered/Resolved]
  - Rectal haemorrhage [Recovered/Resolved]
  - Lymphocyte count decreased [Recovered/Resolved]
